FAERS Safety Report 16912601 (Version 1)
Quarter: 2019Q4

REPORT INFORMATION
  Report Type: Spontaneous
  Country: FI (occurrence: FI)
  Receive Date: 20191014
  Receipt Date: 20191014
  Transmission Date: 20200122
  Serious: Yes (Other)
  Sender: FDA-Public Use
  Company Number: FI-GLAXOSMITHKLINE-FI2019182195

PATIENT
  Age: 66 Year
  Sex: Female

DRUGS (1)
  1. AVAMYS [Suspect]
     Active Substance: FLUTICASONE FUROATE
     Indication: PRODUCT USED FOR UNKNOWN INDICATION
     Dosage: 110 UG, QD
     Route: 045
     Dates: start: 20190910, end: 20190910

REACTIONS (1)
  - Laryngeal dyspnoea [Recovered/Resolved]

NARRATIVE: CASE EVENT DATE: 20190910
